FAERS Safety Report 16824198 (Version 2)
Quarter: 2019Q4

REPORT INFORMATION
  Report Type: Spontaneous
  Country: PT (occurrence: PT)
  Receive Date: 20190918
  Receipt Date: 20191220
  Transmission Date: 20200122
  Serious: Yes (Hospitalization, Other)
  Sender: FDA-Public Use
  Company Number: PT-MYLANLABS-2019M1086301

PATIENT
  Age: 58 Year
  Sex: Male

DRUGS (5)
  1. LEUCOVORIN                         /00566701/ [Concomitant]
     Active Substance: LEUCOVORIN
     Indication: ADENOCARCINOMA OF COLON
     Dosage: UNK
     Route: 065
     Dates: start: 201303, end: 201306
  2. AMOXICILLIN/CLAVULANIC ACID [Suspect]
     Active Substance: AMOXICILLIN\CLAVULANIC ACID
     Indication: ABDOMINAL WALL HAEMATOMA
     Dosage: HE WAS EXPOSED TO AMOXICILIN-CLAVULANATE 7 MONTHS AFTER CHEMOTHERAPY
     Route: 065
     Dates: start: 201312, end: 201312
  3. FLUOROURACIL. [Concomitant]
     Active Substance: FLUOROURACIL
     Indication: ADENOCARCINOMA OF COLON
     Dosage: UNK
     Route: 065
     Dates: start: 201303, end: 201306
  4. AMOXICILLIN/CLAVULANIC ACID [Suspect]
     Active Substance: AMOXICILLIN\CLAVULANIC ACID
     Dosage: UNK
     Route: 065
  5. OXALIPLATIN. [Suspect]
     Active Substance: OXALIPLATIN
     Indication: ADENOCARCINOMA OF COLON
     Dosage: UNK
     Route: 065
     Dates: start: 201303, end: 201306

REACTIONS (5)
  - Drug-induced liver injury [Recovered/Resolved]
  - Non-cirrhotic portal hypertension [Recovered/Resolved]
  - Off label use [Unknown]
  - Cholestasis [Recovered/Resolved]
  - Splenomegaly [Recovered/Resolved]
